FAERS Safety Report 7455141-1 (Version None)
Quarter: 2011Q2

REPORT INFORMATION
  Report Type: 
  Country: None (occurrence: None)
  Receive Date: 20110503
  Receipt Date: 20110428
  Transmission Date: 20111010
  Serious: Yes (Other)
  Sender: FDA-Public Use
  Company Number: US-BAYER-200932168NA

PATIENT
  Age: 64 Year
  Sex: Male

DRUGS (8)
  1. NEXAVAR [Suspect]
     Indication: HEPATIC NEOPLASM MALIGNANT
     Dosage: 400 MG, BID
     Route: 048
     Dates: start: 20090801
  2. NEXAVAR [Suspect]
     Route: 048
  3. METOPROLOL SUCCINATE [Concomitant]
  4. NORVASC [Concomitant]
  5. LIPITOR [Concomitant]
  6. ASPIRIN [Concomitant]
     Dosage: LOW DOSE
  7. NEXAVAR [Suspect]
     Dosage: 400MG QAM AND 200MG QPM - AS USED DOSE: 400/200 MG
     Route: 048
  8. NEXAVAR [Suspect]
     Route: 048

REACTIONS (9)
  - SKIN EXFOLIATION [None]
  - OEDEMA PERIPHERAL [None]
  - ALOPECIA [None]
  - RHINORRHOEA [None]
  - DYSPHONIA [None]
  - FATIGUE [None]
  - HYPOGLYCAEMIA [None]
  - PAIN IN EXTREMITY [None]
  - DRY SKIN [None]
